FAERS Safety Report 16969737 (Version 3)
Quarter: 2019Q4

REPORT INFORMATION
  Report Type: Spontaneous
  Country: HU (occurrence: HU)
  Receive Date: 20191029
  Receipt Date: 20191213
  Transmission Date: 20200122
  Serious: Yes (Hospitalization, Other)
  Sender: FDA-Public Use
  Company Number: HU-MYLANLABS-2019M1101650

PATIENT
  Age: 55 Year
  Sex: Male

DRUGS (3)
  1. IBUPROFEN. [Suspect]
     Active Substance: IBUPROFEN
     Indication: POSTOPERATIVE ANALGESIA
     Dosage: UNK UNK, UNK
  2. WARFARIN [Interacting]
     Active Substance: WARFARIN
     Indication: ANTIPLATELET THERAPY
     Dosage: UNK, UNK
  3. ASPIRIN                            /00002701/ [Interacting]
     Active Substance: ASPIRIN
     Indication: ANTIPLATELET THERAPY
     Dosage: UNK, UNK

REACTIONS (6)
  - Peptic ulcer [Unknown]
  - Melaena [Unknown]
  - Drug interaction [Unknown]
  - Gastritis erosive [Unknown]
  - Gastrointestinal haemorrhage [Unknown]
  - Anaemia [Unknown]
